FAERS Safety Report 13230232 (Version 3)
Quarter: 2017Q4

REPORT INFORMATION
  Report Type: Report from Study
  Country: US (occurrence: US)
  Receive Date: 20170214
  Receipt Date: 20171103
  Transmission Date: 20180320
  Serious: Yes (Other)
  Sender: FDA-Public Use
  Company Number: PHEH2017US003796

PATIENT
  Sex: Male

DRUGS (3)
  1. COSENTYX [Suspect]
     Active Substance: SECUKINUMAB
     Indication: PRODUCT USED FOR UNKNOWN INDICATION
     Dosage: 300 MG, QMO (TWO 150 MG, PENS)
     Route: 065
     Dates: start: 2016
  2. COSENTYX [Suspect]
     Active Substance: SECUKINUMAB
     Dosage: 300 MG, QMO (TWO 150 MG, PENS)
     Route: 065
     Dates: start: 20170203
  3. TEGRETOL [Concomitant]
     Active Substance: CARBAMAZEPINE
     Indication: HEPATIC CIRRHOSIS
     Dosage: UNK
     Route: 065

REACTIONS (6)
  - Hepatic cirrhosis [Unknown]
  - Pain in extremity [Unknown]
  - Contusion [Unknown]
  - Skin exfoliation [Unknown]
  - Tenderness [Unknown]
  - Muscle spasms [Unknown]
